FAERS Safety Report 24602029 (Version 1)
Quarter: 2024Q4

REPORT INFORMATION
  Report Type: Spontaneous
  Country: GB (occurrence: GB)
  Receive Date: 20241111
  Receipt Date: 20241111
  Transmission Date: 20250114
  Serious: Yes (Hospitalization, Other)
  Sender: UNKNOWN
  Company Number: GB-PFIZER INC-202400262787

PATIENT
  Age: 61 Year
  Sex: Female
  Weight: 63 kg

DRUGS (8)
  1. ATORVASTATIN [Suspect]
     Active Substance: ATORVASTATIN
     Indication: Myocardial infarction
     Dosage: 80 MG, 1X/DAY
     Dates: start: 202401
  2. RAMIPRIL [Suspect]
     Active Substance: RAMIPRIL
     Indication: Myocardial infarction
     Dosage: 2.5 MG, 2X/DAY
     Dates: start: 202401
  3. RAMIPRIL [Suspect]
     Active Substance: RAMIPRIL
     Dosage: 2.5 MG, 1X/DAY
     Dates: start: 2024
  4. IBRANCE [Suspect]
     Active Substance: PALBOCICLIB
     Indication: Breast cancer metastatic
     Dosage: 125 MG, 1X/DAY
     Route: 048
     Dates: start: 20170816, end: 202110
  5. IBRANCE [Suspect]
     Active Substance: PALBOCICLIB
     Dosage: 100 MG, CYCLIC
     Route: 048
     Dates: start: 202110, end: 20240123
  6. IBRANCE [Suspect]
     Active Substance: PALBOCICLIB
     Dosage: 100 MG, CYCLIC
     Route: 048
     Dates: start: 20240305
  7. BISOPROLOL [Suspect]
     Active Substance: BISOPROLOL
     Indication: Myocardial infarction
     Dosage: 1.25 MG, 1X/DAY
     Dates: start: 202401
  8. CLOPIDOGREL BISULFATE [Suspect]
     Active Substance: CLOPIDOGREL BISULFATE
     Indication: Myocardial infarction
     Dosage: 75 MG, 1X/DAY
     Dates: start: 202401

REACTIONS (4)
  - Myocardial infarction [Recovering/Resolving]
  - Eczema [Unknown]
  - Neutrophil count decreased [Recovered/Resolved]
  - Rash erythematous [Recovered/Resolved with Sequelae]

NARRATIVE: CASE EVENT DATE: 20240101
